FAERS Safety Report 6801136-8 (Version None)
Quarter: 2010Q2

REPORT INFORMATION
  Report Type: 
  Country: None (occurrence: None)
  Receive Date: 20100629
  Receipt Date: 20100622
  Transmission Date: 20101027
  Serious: Yes (Other)
  Sender: FDA-Public Use
  Company Number: BR-PFIZER INC-2010078189

PATIENT
  Sex: Female

DRUGS (2)
  1. CELEBRA [Suspect]
     Route: 048
  2. CORTICOSTEROIDS [Concomitant]
     Dosage: UNK

REACTIONS (2)
  - RASH ERYTHEMATOUS [None]
  - SWELLING [None]
